FAERS Safety Report 4324147-3 (Version None)
Quarter: 2004Q1

REPORT INFORMATION
  Report Type: 
  Country: None (occurrence: None)
  Receive Date: 20040326
  Receipt Date: 20031230
  Transmission Date: 20041129
  Serious: No
  Sender: FDA-Public Use
  Company Number: US-GLAXOSMITHKLINE-A0490860A

PATIENT
  Age: 34 Year

DRUGS (3)
  1. ADVAIR DISKUS 100/50 [Suspect]
     Indication: ASTHMA
     Dosage: 1PUFF PER DAY
     Route: 055
     Dates: start: 20031201
  2. ALBUTEROL [Concomitant]
  3. MULTIVITAMIN [Concomitant]

REACTIONS (1)
  - PRURITUS [None]
